FAERS Safety Report 7212914-8 (Version None)
Quarter: 2011Q1

REPORT INFORMATION
  Report Type: 
  Country: None (occurrence: None)
  Receive Date: 20110106
  Receipt Date: 20101231
  Transmission Date: 20110831
  Serious: Yes (Hospitalization)
  Sender: FDA-Public Use
  Company Number: US-US-EMD SERONO, INC.-7005662

PATIENT
  Sex: Male

DRUGS (5)
  1. MORPHINE [Concomitant]
  2. REBIF [Suspect]
     Route: 058
     Dates: start: 20100518, end: 20100501
  3. REBIF [Suspect]
     Route: 058
     Dates: start: 20100607, end: 20101224
  4. BACLOFEN [Concomitant]
  5. REBIF [Suspect]
     Indication: PRIMARY PROGRESSIVE MULTIPLE SCLEROSIS
     Dates: start: 20080613, end: 20091218

REACTIONS (6)
  - INFLUENZA LIKE ILLNESS [None]
  - HYPERSOMNIA [None]
  - DYSARTHRIA [None]
  - CONFUSIONAL STATE [None]
  - PNEUMONIA [None]
  - URINARY TRACT INFECTION [None]
